FAERS Safety Report 10925982 (Version 1)
Quarter: 2015Q1

REPORT INFORMATION
  Report Type: Spontaneous
  Country: US (occurrence: None)
  Receive Date: 20150129
  Receipt Date: 20150129
  Transmission Date: 20150721
  Serious: No
  Sender: FDA-Public Use
  Company Number: A-NJ2014-105087

PATIENT
  Age: 58 Year
  Sex: Female

DRUGS (3)
  1. OPSUMIT [Suspect]
     Active Substance: MACITENTAN
     Indication: COR PULMONALE CHRONIC
     Route: 048
  2. VENTAVIS [Suspect]
     Active Substance: ILOPROST
     Indication: COR PULMONALE CHRONIC
     Dosage: RESPIRATORY
     Route: 055
     Dates: start: 20140620
  3. ASPIRIN (ACETYLSALICYLIC ACID) [Concomitant]
     Active Substance: ASPIRIN

REACTIONS (3)
  - Psoriasis [None]
  - Chest discomfort [None]
  - Rash pruritic [None]

NARRATIVE: CASE EVENT DATE: 20140906
